FAERS Safety Report 8309448-6 (Version None)
Quarter: 2012Q2

REPORT INFORMATION
  Report Type: 
  Country: None (occurrence: None)
  Receive Date: 20120424
  Receipt Date: 20120424
  Transmission Date: 20120825
  Serious: No
  Sender: FDA-Public Use
  Company Number: None

PATIENT
  Age: 50 Year
  Sex: Female

DRUGS (9)
  1. HYDROCHLOROTHIAZIDE [Concomitant]
  2. NUVIGIL [Concomitant]
  3. AMPYRA [Suspect]
     Indication: GAIT DISTURBANCE
     Dosage: 10 MG Q12H ORALLY
     Route: 048
     Dates: start: 20110901, end: 20120301
  4. AMPYRA [Suspect]
     Indication: MULTIPLE SCLEROSIS
     Dosage: 10 MG Q12H ORALLY
     Route: 048
     Dates: start: 20110901, end: 20120301
  5. NORTRIPTYLINE HCL [Concomitant]
  6. SIMVASTATIN [Concomitant]
  7. LISINOPRIL [Concomitant]
  8. REBIF [Concomitant]
  9. BACLOFEN [Concomitant]

REACTIONS (3)
  - THROAT IRRITATION [None]
  - CONSTIPATION [None]
  - BACK PAIN [None]
